FAERS Safety Report 21598341 (Version 1)
Quarter: 2022Q4

REPORT INFORMATION
  Report Type: Report from Study
  Country: MX (occurrence: MX)
  Receive Date: 20221115
  Receipt Date: 20221115
  Transmission Date: 20230112
  Serious: Yes (Life-Threatening, Hospitalization, Other)
  Sender: FDA-Public Use
  Company Number: MX-BRISTOL-MYERS SQUIBB COMPANY-2022-133125

PATIENT
  Age: 65 Year
  Sex: Male
  Weight: 62 kg

DRUGS (1)
  1. ORENCIA [Suspect]
     Active Substance: ABATACEPT
     Indication: Rheumatoid arthritis
     Dosage: WEEKLY
     Route: 058
     Dates: start: 20190527, end: 20220318

REACTIONS (3)
  - Hypoxia [Recovering/Resolving]
  - Cardiac hypertrophy [Recovering/Resolving]
  - Pulmonary oedema [Recovering/Resolving]

NARRATIVE: CASE EVENT DATE: 20221030
